FAERS Safety Report 18913857 (Version 1)
Quarter: 2021Q1

REPORT INFORMATION
  Report Type: Spontaneous
  Country: FR (occurrence: FR)
  Receive Date: 20210219
  Receipt Date: 20210219
  Transmission Date: 20210420
  Serious: Yes (Other)
  Sender: FDA-Public Use
  Company Number: FR-SA-2021SA051894

PATIENT
  Age: 67 Year
  Sex: Female
  Weight: 71 kg

DRUGS (1)
  1. RIFINAH [Suspect]
     Active Substance: ISONIAZID\RIFAMPIN
     Indication: LATENT TUBERCULOSIS
     Dosage: 2 DF, QD
     Route: 049
     Dates: start: 20201012, end: 20201116

REACTIONS (1)
  - Hepatocellular injury [Recovered/Resolved]
